FAERS Safety Report 10784741 (Version 3)
Quarter: 2015Q1

REPORT INFORMATION
  Report Type: Spontaneous
  Country: JP (occurrence: None)
  Receive Date: 20150209
  Receipt Date: 20150317
  Transmission Date: 20150721
  Serious: No
  Sender: FDA-Public Use
  Company Number: 2015BCR00021

PATIENT
  Age: 92 Year
  Sex: Female

DRUGS (4)
  1. MEDLENIK (MANGANESE CHLORIDE/ZINC SULFATE HYDRATE COMBINED DRUG) [Concomitant]
  2. OTSUKA MV (MULTIPLE VITAMIN FOR TOTAL PARENTERAL NUTRITION) [Concomitant]
  3. RAPIACTA [Suspect]
     Active Substance: PERAMIVIR
     Indication: INFLUENZA
     Route: 042
     Dates: start: 20150110, end: 20150110
  4. FULCALIQ 1 (MIXED AMINO ACID/CARBOHYDRATE/ELECTROLYTE/VITAMIN COMBINED DRUG) [Concomitant]

REACTIONS (3)
  - Eye swelling [None]
  - Erythema of eyelid [None]
  - IIIrd nerve paralysis [None]

NARRATIVE: CASE EVENT DATE: 20150110
